FAERS Safety Report 16174774 (Version 2)
Quarter: 2019Q2

REPORT INFORMATION
  Report Type: Spontaneous
  Country: US (occurrence: US)
  Receive Date: 20190409
  Receipt Date: 20190426
  Transmission Date: 20190711
  Serious: Yes (Other)
  Sender: FDA-Public Use
  Company Number: US-AMGEN-USASP2019053239

PATIENT
  Age: 48 Year
  Sex: Male
  Weight: 122.47 kg

DRUGS (1)
  1. REPATHA [Suspect]
     Active Substance: EVOLOCUMAB
     Indication: HYPERCHOLESTEROLAEMIA
     Dosage: 140 MILLIGRAM, Q2WK
     Route: 058
     Dates: start: 201901, end: 201902

REACTIONS (4)
  - Pain in extremity [Recovered/Resolved]
  - Memory impairment [Recovered/Resolved]
  - Back pain [Recovered/Resolved]
  - Lethargy [Recovered/Resolved]
